FAERS Safety Report 18123904 (Version 4)
Quarter: 2020Q3

REPORT INFORMATION
  Report Type: Spontaneous
  Country: US (occurrence: US)
  Receive Date: 20200807
  Receipt Date: 20200911
  Transmission Date: 20201103
  Serious: No
  Sender: FDA-Public Use
  Company Number: US-PFIZER INC-2020277681

PATIENT
  Age: 13 Year
  Sex: Female
  Weight: 45.35 kg

DRUGS (2)
  1. GENOTROPIN [Suspect]
     Active Substance: SOMATROPIN
     Indication: GROWTH HORMONE DEFICIENCY
     Dosage: 2.4 ML, 1X/DAY
     Dates: end: 202005
  2. GENOTROPIN [Suspect]
     Active Substance: SOMATROPIN
     Dosage: 2.4 MG, UNK
     Dates: start: 2019

REACTIONS (3)
  - Product dose omission issue [Unknown]
  - Device issue [Unknown]
  - Intentional device misuse [Unknown]
